FAERS Safety Report 6289352-8 (Version None)
Quarter: 2009Q3

REPORT INFORMATION
  Report Type: 
  Country: None (occurrence: None)
  Receive Date: 20090728
  Receipt Date: 20090728
  Transmission Date: 20100115
  Serious: Yes (Other)
  Sender: FDA-Public Use
  Company Number: None

PATIENT
  Weight: 98.4306 kg

DRUGS (2)
  1. BENAZEPRIL HYDROCHLORIDE [Suspect]
     Indication: HYPERTENSION
     Dosage: 1 TABLET IN THE MORNING 1X A DAY PO
     Route: 048
     Dates: start: 20090417, end: 20090719
  2. VIAGRA [Concomitant]

REACTIONS (7)
  - CHEST PAIN [None]
  - COUGH [None]
  - ERECTILE DYSFUNCTION [None]
  - INSOMNIA [None]
  - MOOD ALTERED [None]
  - RETCHING [None]
  - SELF-MEDICATION [None]
